FAERS Safety Report 11415880 (Version 1)
Quarter: 2015Q3

REPORT INFORMATION
  Report Type: Report from Study
  Country: US (occurrence: US)
  Receive Date: 20150825
  Receipt Date: 20150825
  Transmission Date: 20151125
  Serious: No
  Sender: FDA-Public Use
  Company Number: US-UNITED THERAPEUTICS-P01-792

PATIENT
  Age: 53 Year
  Sex: Male
  Weight: 111 kg

DRUGS (3)
  1. LASIX [Concomitant]
     Active Substance: FUROSEMIDE
     Indication: HEPATIC FAILURE
  2. ALDACTONE [Concomitant]
     Active Substance: SPIRONOLACTONE
  3. TREPROSTINIL SODIUM (SQ/IV) [Suspect]
     Active Substance: TREPROSTINIL SODIUM
     Indication: PULMONARY HYPERTENSION
     Dosage: 30 NG/KG/MIN
     Route: 058
     Dates: start: 20010208

REACTIONS (2)
  - Acute kidney injury [Recovered/Resolved]
  - Hypotension [Recovered/Resolved]

NARRATIVE: CASE EVENT DATE: 20010726
